FAERS Safety Report 15567815 (Version 1)
Quarter: 2018Q4

REPORT INFORMATION
  Report Type: Spontaneous
  Country: BE (occurrence: BE)
  Receive Date: 20181030
  Receipt Date: 20181030
  Transmission Date: 20190205
  Serious: Yes (Other)
  Sender: FDA-Public Use
  Company Number: BE-MYLANLABS-2018M1080788

PATIENT
  Age: 69 Year
  Sex: Male

DRUGS (4)
  1. CISPLATIN. [Suspect]
     Active Substance: CISPLATIN
     Indication: HYPOPHARYNGEAL CANCER RECURRENT
     Dosage: 100 MG/M2, UNK
     Route: 065
  2. ACETYLSALICYLIC ACID [Concomitant]
     Active Substance: ASPIRIN
     Indication: PRODUCT USED FOR UNKNOWN INDICATION
     Dosage: UNK
     Route: 065
  3. CETUXIMAB. [Suspect]
     Active Substance: CETUXIMAB
     Indication: HYPOPHARYNGEAL CANCER RECURRENT
     Dosage: 250 MG/M2, UNK
     Route: 065
  4. FLUOROURACIL. [Suspect]
     Active Substance: FLUOROURACIL
     Indication: HYPOPHARYNGEAL CANCER RECURRENT
     Dosage: 1000 MG/M2, UNK
     Route: 065

REACTIONS (6)
  - Nausea [Unknown]
  - Pain in extremity [Unknown]
  - Embolism [Unknown]
  - Weight decreased [Unknown]
  - Peripheral coldness [Unknown]
  - Decreased appetite [Unknown]
